FAERS Safety Report 9056406 (Version 1)
Quarter: 2013Q1

REPORT INFORMATION
  Report Type: Spontaneous
  Country: DK (occurrence: GB)
  Receive Date: 20130204
  Receipt Date: 20130204
  Transmission Date: 20140127
  Serious: Yes (Hospitalization, Disabling)
  Sender: FDA-Public Use
  Company Number: GB-FRI-1000042348

PATIENT
  Age: 40 Year
  Sex: Male
  Weight: 77 kg

DRUGS (18)
  1. CITALOPRAM [Suspect]
     Indication: ANXIETY
     Dosage: 20 MG DAILY
     Route: 048
     Dates: start: 20121111
  2. CITALOPRAM [Suspect]
     Indication: ANXIETY
     Dosage: 20 MG DAILY
     Route: 048
  3. CITALOPRAM [Suspect]
     Dosage: 10 MG
     Route: 048
     Dates: end: 20130104
  4. PROMETHAZINE [Concomitant]
  5. COENZYME Q10 [Concomitant]
  6. DEXTROMETHORPHAN HYDROBROMIDE [Concomitant]
  7. DIPHENHYDRAMINE HYDROCHLORIDE [Concomitant]
  8. DOXYCYLINE [Concomitant]
  9. ECHINACEA [Concomitant]
  10. FISH OIL CONCENTRATE [Concomitant]
     Indication: ARTHRALGIA
  11. FISH OIL CONCENTRATE [Concomitant]
     Indication: LIPIDS ABNORMAL
  12. GLUCOSAMINE WITH CONDROITIN [Concomitant]
     Indication: ARTHRALGIA
  13. GLUCOSAMINE WITH CONDROITIN [Concomitant]
     Indication: LIPIDS ABNORMAL
  14. INSULIN HUMAN [Concomitant]
  15. LEVOMENTHOL [Concomitant]
  16. NIACIN [Concomitant]
     Indication: ARTHRALGIA
  17. NIACIN [Concomitant]
     Indication: LIPIDS ABNORMAL
  18. PARACETAMOL [Concomitant]

REACTIONS (6)
  - Haemorrhage [Recovering/Resolving]
  - Headache [Not Recovered/Not Resolved]
  - Insomnia [Not Recovered/Not Resolved]
  - Nausea [Not Recovered/Not Resolved]
  - Prothrombin level abnormal [Unknown]
  - Libido decreased [Recovered/Resolved]
